FAERS Safety Report 4286354-8 (Version None)
Quarter: 2004Q1

REPORT INFORMATION
  Report Type: 
  Country: None (occurrence: None)
  Receive Date: 20040205
  Receipt Date: 20040202
  Transmission Date: 20041129
  Serious: Yes (Life-Threatening, Other)
  Sender: FDA-Public Use
  Company Number: WAES 0402GBR00023

PATIENT
  Age: 57 Year
  Sex: Female

DRUGS (5)
  1. ETODOLAC [Concomitant]
     Route: 048
     Dates: end: 20040107
  2. NEBIVOLOL [Concomitant]
     Route: 048
  3. RAMIPRIL [Concomitant]
     Route: 048
  4. RANITIDINE [Concomitant]
     Route: 048
     Dates: start: 20040107, end: 20040109
  5. VIOXX [Suspect]
     Indication: OSTEOARTHRITIS
     Route: 048
     Dates: start: 20040108, end: 20040109

REACTIONS (1)
  - MYOCARDIAL INFARCTION [None]
